FAERS Safety Report 5099147-9 (Version None)
Quarter: 2006Q3

REPORT INFORMATION
  Report Type: 
  Country: None (occurrence: None)
  Receive Date: 20060731
  Receipt Date: 20050829
  Transmission Date: 20061208
  Serious: Yes (Life-Threatening)
  Sender: FDA-Public Use
  Company Number: 216877

PATIENT
  Age: 15 Year
  Sex: Male

DRUGS (3)
  1. RITUXAN [Suspect]
     Indication: BURKITT'S LYMPHOMA
     Dosage: 50 MG/HR,; 100 MG/HR,
     Dates: start: 20050811, end: 20050811
  2. RITUXAN [Suspect]
     Indication: BURKITT'S LYMPHOMA
     Dosage: 50 MG/HR,; 100 MG/HR,
     Dates: start: 20050811, end: 20050811
  3. ALBUTEROL (ALBUTEROL/ALBUTEROL SULFATE) [Concomitant]

REACTIONS (1)
  - INFUSION RELATED REACTION [None]
